FAERS Safety Report 9582211 (Version 1)
Quarter: 2013Q4

REPORT INFORMATION
  Report Type: Spontaneous
  Country: US (occurrence: US)
  Receive Date: 20131002
  Receipt Date: 20131002
  Transmission Date: 20140711
  Serious: No
  Sender: FDA-Public Use
  Company Number: US-AMGEN-USASP2013039168

PATIENT
  Age: 45 Year
  Sex: Female
  Weight: 69 kg

DRUGS (5)
  1. ENBREL [Suspect]
     Indication: PRODUCT USED FOR UNKNOWN INDICATION
     Dosage: 50 MG, 2 TIMES/WK
     Route: 058
     Dates: start: 20130507
  2. VENLAFAXINE [Concomitant]
     Dosage: 37.5 MG, UNK
  3. FISH OIL [Concomitant]
     Dosage: UNK
  4. TURMERIC                           /01079602/ [Concomitant]
     Dosage: 450 MG, UNK
  5. ALLERGY MEDICATION [Concomitant]
     Dosage: UNK

REACTIONS (2)
  - Ear congestion [Unknown]
  - Odynophagia [Unknown]
